FAERS Safety Report 24691425 (Version 7)
Quarter: 2025Q3

REPORT INFORMATION
  Report Type: Spontaneous
  Country: US (occurrence: US)
  Receive Date: 20241203
  Receipt Date: 20250828
  Transmission Date: 20251021
  Serious: No
  Sender: PFIZER
  Company Number: US-PFIZER INC-202400315991

PATIENT
  Age: 89 Year
  Sex: Female

DRUGS (2)
  1. IBRANCE [Suspect]
     Active Substance: PALBOCICLIB
     Indication: Breast cancer female
     Dosage: 100 MG, DAILY (TAKE 1 TABLET (100 MG TOTAL) BY MOUTH DAILY)
     Route: 048
  2. IBRANCE [Suspect]
     Active Substance: PALBOCICLIB

REACTIONS (1)
  - Immune system disorder [Unknown]
